FAERS Safety Report 20809656 (Version 1)
Quarter: 2022Q2

REPORT INFORMATION
  Report Type: Spontaneous
  Country: US (occurrence: US)
  Receive Date: 20220510
  Receipt Date: 20220510
  Transmission Date: 20220720
  Serious: No
  Sender: FDA-Public Use
  Company Number: US-OYSTER POINT PHARMA, INC.-2022OYS00312

PATIENT
  Age: 41 Year
  Sex: Male
  Weight: 73.482 kg

DRUGS (3)
  1. TYRVAYA [Suspect]
     Active Substance: VARENICLINE TARTRATE
     Indication: Dry eye
     Dosage: 1 SPRAY IN EACH NOSTRIL, 1X/DAY AT NIGHT
     Route: 045
     Dates: start: 202202
  2. XIIDRA [Concomitant]
     Active Substance: LIFITEGRAST
     Dosage: UNK, 1X/DAY IN THE MORNING
  3. ALREX [Concomitant]
     Active Substance: LOTEPREDNOL ETABONATE

REACTIONS (6)
  - Eye irritation [Recovering/Resolving]
  - Ocular hyperaemia [Recovering/Resolving]
  - Eye pain [Recovering/Resolving]
  - Accidental exposure to product [Recovered/Resolved]
  - Off label use [Not Recovered/Not Resolved]
  - Lacrimation increased [Recovering/Resolving]

NARRATIVE: CASE EVENT DATE: 20220201
